FAERS Safety Report 4782612-9 (Version None)
Quarter: 2005Q3

REPORT INFORMATION
  Report Type: 
  Country: None (occurrence: None)
  Receive Date: 20050929
  Receipt Date: 20050425
  Transmission Date: 20060218
  Serious: No
  Sender: FDA-Public Use
  Company Number: 403136

PATIENT
  Age: 68 Year
  Sex: Female

DRUGS (2)
  1. COREG [Suspect]
     Indication: MYOCARDIAL INFARCTION
     Dosage: 3.125MG PER DAY
     Route: 048
     Dates: start: 20040928
  2. NO CONCURRENT MEDICATION [Concomitant]

REACTIONS (5)
  - CHEST DISCOMFORT [None]
  - DYSPNOEA [None]
  - HEADACHE [None]
  - NASAL CONGESTION [None]
  - TREMOR [None]
